FAERS Safety Report 6630626-6 (Version None)
Quarter: 2010Q1

REPORT INFORMATION
  Report Type: 
  Country: None (occurrence: None)
  Receive Date: 20100311
  Receipt Date: 20090526
  Transmission Date: 20100710
  Serious: No
  Sender: FDA-Public Use
  Company Number: US-BIOGENIDEC-2009BI015884

PATIENT
  Age: 53 Year
  Sex: Female

DRUGS (1)
  1. AVONEX [Suspect]
     Indication: MULTIPLE SCLEROSIS
     Route: 030
     Dates: start: 20090202

REACTIONS (6)
  - CYSTITIS [None]
  - HYPOAESTHESIA [None]
  - OEDEMA MOUTH [None]
  - ORAL PAIN [None]
  - PRURITUS GENERALISED [None]
  - SWOLLEN TONGUE [None]
